FAERS Safety Report 5694735-0 (Version None)
Quarter: 2008Q2

REPORT INFORMATION
  Report Type: 
  Country: None (occurrence: None)
  Receive Date: 20080404
  Receipt Date: 20080401
  Transmission Date: 20081010
  Serious: Yes (Other)
  Sender: FDA-Public Use
  Company Number: US-KINGPHARMUSA00001-K200800375

PATIENT

DRUGS (1)
  1. ALTACE [Suspect]

REACTIONS (1)
  - GASTROINTESTINAL HAEMORRHAGE [None]
